FAERS Safety Report 7723294-3 (Version None)
Quarter: 2011Q3

REPORT INFORMATION
  Report Type: 
  Country: None (occurrence: None)
  Receive Date: 20110901
  Receipt Date: 20110823
  Transmission Date: 20111222
  Serious: Yes (Other)
  Sender: FDA-Public Use
  Company Number: AU-SANOFI-AVENTIS-2011SA054690

PATIENT
  Age: 7 Year
  Sex: Female

DRUGS (7)
  1. CLAVULANATE POTASSIUM [Concomitant]
     Indication: OTITIS MEDIA
     Route: 065
  2. ANTIBIOTICS FOR TOPICAL USE [Concomitant]
     Indication: OTITIS EXTERNA
     Route: 065
  3. CEFOTAXIME SODIUM [Suspect]
     Indication: HORNER'S SYNDROME
     Route: 042
  4. CEFOTAXIME SODIUM [Suspect]
     Indication: OTITIS MEDIA
     Route: 042
  5. CLAVULANATE POTASSIUM [Concomitant]
     Indication: HORNER'S SYNDROME
     Route: 065
  6. AMOXICILLIN [Concomitant]
     Indication: HORNER'S SYNDROME
     Route: 065
  7. AMOXICILLIN [Concomitant]
     Indication: OTITIS MEDIA
     Route: 065

REACTIONS (1)
  - THROMBOPHLEBITIS [None]
